FAERS Safety Report 7828620-2 (Version None)
Quarter: 2011Q4

REPORT INFORMATION
  Report Type: 
  Country: None (occurrence: None)
  Receive Date: 20111020
  Receipt Date: 20111014
  Transmission Date: 20120403
  Serious: Yes (Other)
  Sender: FDA-Public Use
  Company Number: US-ABBOTT-11P-163-0864411-00

PATIENT
  Sex: Female
  Weight: 59.02 kg

DRUGS (4)
  1. MERCAPTOPURINE [Concomitant]
     Indication: CROHN'S DISEASE
  2. LEXAPRO [Concomitant]
     Indication: PRODUCT USED FOR UNKNOWN INDICATION
  3. HUMIRA [Suspect]
     Indication: CROHN'S DISEASE
     Dates: start: 20080201, end: 20110801
  4. VITAMIN B COMPLEX CAP [Concomitant]
     Indication: PRODUCT USED FOR UNKNOWN INDICATION

REACTIONS (12)
  - DRUG DOSE OMISSION [None]
  - ABASIA [None]
  - PAIN [None]
  - HYPOPHAGIA [None]
  - COAGULOPATHY [None]
  - ARTHRALGIA [None]
  - ABDOMINAL PAIN UPPER [None]
  - THROMBOSIS [None]
  - PAIN IN EXTREMITY [None]
  - WEIGHT BEARING DIFFICULTY [None]
  - INSOMNIA [None]
  - DEVICE MALFUNCTION [None]
